FAERS Safety Report 5703672-4 (Version None)
Quarter: 2008Q2

REPORT INFORMATION
  Report Type: 
  Country: None (occurrence: None)
  Receive Date: 20080413
  Receipt Date: 20080404
  Transmission Date: 20081010
  Serious: Yes (Other)
  Sender: FDA-Public Use
  Company Number: PHBS2008BE03885

PATIENT
  Age: 65 Year
  Sex: Female

DRUGS (7)
  1. CYCLOSPORINE [Suspect]
     Indication: RENAL TRANSPLANT
     Route: 065
  2. MYCOPHENOLATE MOFETIL [Suspect]
     Indication: RENAL TRANSPLANT
     Dosage: 2000 MG/D
     Route: 065
  3. MYCOPHENOLATE MOFETIL [Suspect]
     Dosage: 1000 MG/D
     Route: 065
  4. CORTICOSTEROIDS [Suspect]
     Indication: RENAL TRANSPLANT
  5. VORICONAZOLE [Suspect]
     Dosage: 200 MG, BID
     Route: 048
  6. VORICONAZOLE [Suspect]
     Dosage: 200 MG/D
     Route: 048
  7. VORICONAZOLE [Suspect]
     Dosage: 100 MG/D
     Route: 048

REACTIONS (9)
  - CHOLESTASIS [None]
  - CYTOLYTIC HEPATITIS [None]
  - DRUG INTERACTION [None]
  - ERYTHEMA [None]
  - NODULE [None]
  - OEDEMA PERIPHERAL [None]
  - PAIN IN EXTREMITY [None]
  - SCEDOSPORIUM INFECTION [None]
  - SKIN LESION EXCISION [None]
